FAERS Safety Report 9834067 (Version 5)
Quarter: 2015Q4

REPORT INFORMATION
  Report Type: Report from Study
  Country: US (occurrence: US)
  Receive Date: 20140122
  Receipt Date: 20151006
  Transmission Date: 20160305
  Serious: Yes (Death, Life-Threatening, Hospitalization, Other)
  Sender: FDA-Public Use
  Company Number: PHEH2014US001445

PATIENT
  Age: 46 Year
  Sex: Male

DRUGS (34)
  1. XOLAIR [Suspect]
     Active Substance: OMALIZUMAB
     Dosage: (AS NEEDED 3 INJECTIONS EVERY 2 WEEKS)
     Route: 058
  2. AZITHROMYCIN [Concomitant]
     Active Substance: AZITHROMYCIN ANHYDROUS
     Indication: PNEUMONIA PSEUDOMONAL
     Dosage: 250 OT, (MWF)
     Route: 065
  3. MORPHINE [Concomitant]
     Active Substance: MORPHINE
     Indication: PRODUCT USED FOR UNKNOWN INDICATION
     Route: 065
  4. VICODIN HP [Concomitant]
     Active Substance: ACETAMINOPHEN\HYDROCODONE BITARTRATE
     Indication: PRODUCT USED FOR UNKNOWN INDICATION
     Route: 065
  5. LEVAQUIN [Concomitant]
     Active Substance: LEVOFLOXACIN
     Indication: PRODUCT USED FOR UNKNOWN INDICATION
     Dosage: 750 MG, QW
     Route: 065
  6. XOLAIR [Suspect]
     Active Substance: OMALIZUMAB
     Dosage: 16 MG, (SECOND SHOT)
     Route: 065
     Dates: start: 20140310
  7. IMURAN [Suspect]
     Active Substance: AZATHIOPRINE
     Dosage: 50 MG, BID
     Route: 065
  8. DEXAMETHASONE. [Concomitant]
     Active Substance: DEXAMETHASONE
     Indication: PRODUCT USED FOR UNKNOWN INDICATION
     Dosage: 2 DF, PRN
     Route: 065
  9. FENTANYL. [Suspect]
     Active Substance: FENTANYL
     Indication: PAIN
     Dosage: 1 DF, UNK
     Route: 065
  10. DEXTROAMPHETAMINE. [Concomitant]
     Active Substance: DEXTROAMPHETAMINE
     Indication: PRODUCT USED FOR UNKNOWN INDICATION
     Dosage: 10 MG, QD (2 TABLETS)
     Route: 065
  11. AVASTIN [Concomitant]
     Active Substance: BEVACIZUMAB
     Indication: PRODUCT USED FOR UNKNOWN INDICATION
     Route: 065
  12. IBUPROFEN. [Concomitant]
     Active Substance: IBUPROFEN
     Indication: PRODUCT USED FOR UNKNOWN INDICATION
     Route: 065
  13. ZOFRAN [Concomitant]
     Active Substance: ONDANSETRON HYDROCHLORIDE
     Indication: PRODUCT USED FOR UNKNOWN INDICATION
     Dosage: UNK UNK, PRN
     Route: 065
  14. SODIUM BICARBONATE. [Concomitant]
     Active Substance: SODIUM BICARBONATE
     Indication: PRODUCT USED FOR UNKNOWN INDICATION
     Route: 065
  15. PROBIOTICS                         /07325001/ [Concomitant]
     Indication: PRODUCT USED FOR UNKNOWN INDICATION
     Route: 065
  16. IMURAN [Suspect]
     Active Substance: AZATHIOPRINE
     Indication: PRODUCT USED FOR UNKNOWN INDICATION
     Dosage: 2 DF, QD (50 MG)
     Route: 048
  17. DEXTROAMPHETAMINE. [Concomitant]
     Active Substance: DEXTROAMPHETAMINE
     Dosage: 30 MG, BID (1 TABLET)
     Route: 065
  18. MILK OF MAGNESIA [Concomitant]
     Active Substance: MAGNESIUM HYDROXIDE
     Indication: PRODUCT USED FOR UNKNOWN INDICATION
     Route: 065
  19. CIPRO [Concomitant]
     Active Substance: CIPROFLOXACIN HYDROCHLORIDE
     Indication: PRODUCT USED FOR UNKNOWN INDICATION
     Dosage: 1 DF, BID
     Route: 065
  20. TRAMADOL HCL [Concomitant]
     Active Substance: TRAMADOL HYDROCHLORIDE
     Indication: PRODUCT USED FOR UNKNOWN INDICATION
     Dosage: 1 DF, (4 TIMES/DAY; 40 TABS)
     Route: 065
  21. XOLAIR [Suspect]
     Active Substance: OMALIZUMAB
     Indication: ASTHMA
     Dosage: 32 MG, (FIRST SHOT)
     Route: 065
     Dates: start: 20140226
  22. LEVOTHYROXINE. [Concomitant]
     Active Substance: LEVOTHYROXINE
     Indication: PRODUCT USED FOR UNKNOWN INDICATION
     Dosage: 75 MG, QD
     Route: 048
  23. MELATONIN [Concomitant]
     Active Substance: MELATONIN
     Indication: PRODUCT USED FOR UNKNOWN INDICATION
     Dosage: (QHS), PRN
     Route: 048
  24. TAZOBACTAM [Concomitant]
     Active Substance: TAZOBACTAM
     Indication: PRODUCT USED FOR UNKNOWN INDICATION
     Dosage: 3.375 G, (Q 12)
     Route: 065
  25. IMURAN [Suspect]
     Active Substance: AZATHIOPRINE
     Dosage: 100 MG, QD
     Route: 065
  26. ADVAIR HFA [Concomitant]
     Active Substance: FLUTICASONE PROPIONATE\SALMETEROL XINAFOATE
     Indication: PRODUCT USED FOR UNKNOWN INDICATION
     Dosage: 1 DF, (PUFF) BID
     Route: 065
  27. COLACE [Concomitant]
     Active Substance: DOCUSATE SODIUM
     Indication: PRODUCT USED FOR UNKNOWN INDICATION
     Route: 065
  28. LACTOBACILLUS [Concomitant]
     Active Substance: LACTOBACILLUS ACIDOPHILUS
     Indication: PRODUCT USED FOR UNKNOWN INDICATION
     Dosage: 2 DF, QD
     Route: 065
  29. ACETAMINOPHEN. [Concomitant]
     Active Substance: ACETAMINOPHEN
     Indication: PRODUCT USED FOR UNKNOWN INDICATION
     Route: 065
  30. AZACTAM [Concomitant]
     Active Substance: AZTREONAM
     Indication: PRODUCT USED FOR UNKNOWN INDICATION
     Dosage: 1 G, Q8
     Route: 042
  31. ALBUTEROL SULFATE. [Concomitant]
     Active Substance: ALBUTEROL SULFATE
     Indication: PRODUCT USED FOR UNKNOWN INDICATION
     Dosage: (2.5MG/3ML), Q6H PRN 120 DAYS
     Route: 065
  32. TOBI [Suspect]
     Active Substance: TOBRAMYCIN
     Indication: BRONCHIECTASIS
     Dosage: 300 MG TWICE A DAY
     Route: 055
  33. LEVOTHYROXINE SODIUM. [Concomitant]
     Active Substance: LEVOTHYROXINE SODIUM
     Indication: PRODUCT USED FOR UNKNOWN INDICATION
     Dosage: 1 DF, QD (30 DAYS)
     Route: 065
  34. FLONASE [Concomitant]
     Active Substance: FLUTICASONE PROPIONATE
     Indication: PRODUCT USED FOR UNKNOWN INDICATION
     Route: 065

REACTIONS (88)
  - Failure to thrive [Recovering/Resolving]
  - Respiratory failure [Unknown]
  - Condition aggravated [Unknown]
  - Skin ulcer [Unknown]
  - Night sweats [Unknown]
  - Back pain [Unknown]
  - Depressed level of consciousness [Unknown]
  - Vasculitis [Unknown]
  - Nasal pruritus [Unknown]
  - Eye pruritus [Unknown]
  - Attention deficit/hyperactivity disorder [Unknown]
  - Rales [Unknown]
  - Poor quality sleep [Unknown]
  - Asthma [Not Recovered/Not Resolved]
  - Dyspnoea [Recovering/Resolving]
  - Pain [Recovering/Resolving]
  - Hypersensitivity vasculitis [Unknown]
  - Hypotension [Not Recovered/Not Resolved]
  - Ear infection [Unknown]
  - Seasonal allergy [Unknown]
  - Swelling face [Unknown]
  - Ocular hyperaemia [Unknown]
  - Lethargy [Recovering/Resolving]
  - Wheezing [Recovering/Resolving]
  - Productive cough [Recovering/Resolving]
  - Malaise [Unknown]
  - Tachycardia [Unknown]
  - Neuropathy peripheral [Unknown]
  - Sinus congestion [Unknown]
  - Rhinitis allergic [Unknown]
  - Pneumonia [Unknown]
  - Oxygen saturation decreased [Unknown]
  - Bronchitis [Unknown]
  - Pneumonia pseudomonal [Unknown]
  - Pseudomonas bronchitis [Not Recovered/Not Resolved]
  - Blood immunoglobulin E increased [Unknown]
  - Hypoxia [Recovering/Resolving]
  - Pyrexia [Unknown]
  - Lung infection [Unknown]
  - Lung infiltration [Unknown]
  - Middle ear effusion [Unknown]
  - Hyperhidrosis [Unknown]
  - Apparent death [Unknown]
  - Bronchiectasis [Unknown]
  - Rhinitis [Unknown]
  - Sputum increased [Recovering/Resolving]
  - Urine output decreased [Unknown]
  - Paralysis [Unknown]
  - Hyperthyroidism [Unknown]
  - Depression [Unknown]
  - Hypothyroidism [Unknown]
  - Ligament sprain [Unknown]
  - Gastrooesophageal reflux disease [Unknown]
  - Decreased appetite [Unknown]
  - Product use issue [Unknown]
  - Chills [Unknown]
  - Lower respiratory tract congestion [Unknown]
  - Renal failure [Unknown]
  - Sneezing [Unknown]
  - Axonal neuropathy [Unknown]
  - Reflux gastritis [Unknown]
  - Death [Fatal]
  - Lymphadenopathy [Recovering/Resolving]
  - Fatigue [Unknown]
  - Throat irritation [Unknown]
  - Cough [Recovering/Resolving]
  - Chest pain [Unknown]
  - Hyperphosphataemia [Unknown]
  - Hyperlipidaemia [Unknown]
  - Fall [Unknown]
  - Alopecia [Unknown]
  - Arthralgia [Unknown]
  - Rhinorrhoea [Unknown]
  - Tearfulness [Unknown]
  - Conjunctivitis [Unknown]
  - Asthenia [Unknown]
  - Respiratory distress [Unknown]
  - Chest discomfort [Unknown]
  - Pleuritic pain [Unknown]
  - Sputum discoloured [Unknown]
  - Hypokalaemia [Unknown]
  - General physical health deterioration [Unknown]
  - Vasculitic rash [Unknown]
  - Metabolic disorder [Unknown]
  - Pallor [Unknown]
  - Nasal congestion [Unknown]
  - Otitis externa [Recovered/Resolved]
  - Lung disorder [Unknown]

NARRATIVE: CASE EVENT DATE: 20140524
